FAERS Safety Report 5504774-8 (Version None)
Quarter: 2007Q4

REPORT INFORMATION
  Report Type: 
  Country: None (occurrence: None)
  Receive Date: 20071031
  Receipt Date: 20071031
  Transmission Date: 20080405
  Serious: Yes (Life-Threatening)
  Sender: FDA-Public Use
  Company Number: None

PATIENT
  Sex: Female
  Weight: 81.6475 kg

DRUGS (1)
  1. XOLAIR [Suspect]

REACTIONS (4)
  - COUGH [None]
  - DYSPNOEA [None]
  - MALAISE [None]
  - THROAT TIGHTNESS [None]
